FAERS Safety Report 23911301 (Version 2)
Quarter: 2024Q2

REPORT INFORMATION
  Report Type: Spontaneous
  Country: CA (occurrence: CA)
  Receive Date: 20240528
  Receipt Date: 20240611
  Transmission Date: 20240716
  Serious: Yes (Other)
  Sender: FDA-Public Use
  Company Number: CA-BAYER-2024A076247

PATIENT
  Sex: Male

DRUGS (1)
  1. EYLEA [Suspect]
     Active Substance: AFLIBERCEPT
     Indication: Age-related macular degeneration
     Dosage: 2 MG,RIGHT EYE, 40 MG/ML, SOLUTION FOR INJECTION IN PRE-FILLED SYRINGE
     Dates: start: 20240416

REACTIONS (6)
  - Adverse drug reaction [Unknown]
  - Hypopyon [Recovering/Resolving]
  - Endophthalmitis [Recovering/Resolving]
  - Endophthalmitis [Recovering/Resolving]
  - Vitritis [Recovering/Resolving]
  - Visual acuity reduced [Recovering/Resolving]

NARRATIVE: CASE EVENT DATE: 20240416
